FAERS Safety Report 9631046 (Version 2)
Quarter: 2013Q4

REPORT INFORMATION
  Report Type: Spontaneous
  Country: US (occurrence: None)
  Receive Date: 20131015
  Receipt Date: 20131030
  Transmission Date: 20140711
  Serious: Yes (Hospitalization, Other)
  Sender: FDA-Public Use
  Company Number: ADR-2013-01832

PATIENT
  Age: 09 Year
  Sex: Male

DRUGS (1)
  1. LIORESAL INTRATHECAL (BACLOFEN INJECTION) 2000 MCG/ML [Suspect]
     Indication: MUSCLE SPASTICITY
     Dosage: DAY

REACTIONS (4)
  - Implant site infection [None]
  - Implant site cellulitis [None]
  - Seroma [None]
  - Staphylococcus test positive [None]
